FAERS Safety Report 6982039-5 (Version None)
Quarter: 2010Q3

REPORT INFORMATION
  Report Type: 
  Country: None (occurrence: None)
  Receive Date: 20100914
  Receipt Date: 20091208
  Transmission Date: 20110219
  Serious: No
  Sender: FDA-Public Use
  Company Number: US-PFIZER INC-2009281655

PATIENT
  Sex: Male
  Weight: 77.56 kg

DRUGS (13)
  1. LYRICA [Suspect]
     Indication: RADICULOPATHY
     Dosage: 50 MG, 3X/DAY
     Route: 048
     Dates: start: 20091004
  2. LYRICA [Suspect]
     Indication: PERIPHERAL NERVE INJURY
  3. LYRICA [Suspect]
     Indication: PAIN IN EXTREMITY
  4. LYRICA [Suspect]
     Indication: BURNING SENSATION
  5. PROSCAR [Concomitant]
     Indication: PROSTATOMEGALY
     Dosage: UNK
  6. CARDURA [Concomitant]
     Dosage: UNK
  7. ATENOLOL [Concomitant]
     Dosage: UNK
  8. ZOCOR [Concomitant]
     Dosage: UNK
  9. WARFARIN [Concomitant]
     Dosage: UNK
  10. VALIUM [Concomitant]
     Dosage: AS NEEDED
  11. PRILOSEC [Concomitant]
     Indication: GASTRIC DISORDER
     Dosage: UNK
  12. VICODIN [Concomitant]
     Dosage: UNK
  13. ERYTHROCIN LACTOBIONATE [Concomitant]
     Indication: GASTRIC DISORDER
     Dosage: UNK

REACTIONS (4)
  - BACK PAIN [None]
  - BURNING SENSATION [None]
  - DRUG INEFFECTIVE [None]
  - DYSPEPSIA [None]
